FAERS Safety Report 17132039 (Version 1)
Quarter: 2019Q4

REPORT INFORMATION
  Report Type: Spontaneous
  Country: RO (occurrence: RO)
  Receive Date: 20191210
  Receipt Date: 20191210
  Transmission Date: 20200122
  Serious: Yes (Other)
  Sender: FDA-Public Use
  Company Number: RO-SA-2019SA339577

PATIENT
  Age: 77 Year
  Sex: Female

DRUGS (9)
  1. TAMSULOSIN HYDROCHLORIDE. [Suspect]
     Active Substance: TAMSULOSIN HYDROCHLORIDE
     Dosage: 1 DF, QD (AT LUNCH TIME)
     Route: 048
     Dates: start: 20190731
  2. BETASERC [Concomitant]
     Active Substance: BETAHISTINE
  3. SERMION [NICERGOLINE] [Concomitant]
  4. SIMVACARD [Concomitant]
     Active Substance: SIMVASTATIN
  5. SOLIFENACIN SUCCINATE. [Suspect]
     Active Substance: SOLIFENACIN SUCCINATE
     Indication: DYSURIA
     Dosage: UNK (1 OT, ONCE DAILY AT NIGHT)
     Route: 048
     Dates: start: 20190721, end: 20190730
  6. TERTENSIF [Concomitant]
     Active Substance: INDAPAMIDE
  7. TAMSULOSIN HYDROCHLORIDE. [Suspect]
     Active Substance: TAMSULOSIN HYDROCHLORIDE
     Indication: DYSURIA
     Dosage: 1 DF, HS
     Route: 048
     Dates: start: 201810, end: 20190720
  8. AERIUS [EBASTINE] [Concomitant]
     Active Substance: EBASTINE
  9. ASPENTER [Concomitant]
     Active Substance: ASPIRIN

REACTIONS (3)
  - Urinary tract obstruction [Recovered/Resolved]
  - Product use issue [Unknown]
  - Urinary retention [Recovered/Resolved]

NARRATIVE: CASE EVENT DATE: 20190721
